FAERS Safety Report 8621027-X (Version None)
Quarter: 2012Q3

REPORT INFORMATION
  Report Type: 
  Country: None (occurrence: None)
  Receive Date: 20120824
  Receipt Date: 20120821
  Transmission Date: 20120928
  Serious: Yes (Hospitalization, Other)
  Sender: FDA-Public Use
  Company Number: US-009507513-2011SP030599

PATIENT

DRUGS (4)
  1. NUVARING [Suspect]
     Dosage: UNK
     Route: 067
     Dates: start: 20090601, end: 20090701
  2. NUVARING [Suspect]
     Indication: PRODUCT USED FOR UNKNOWN INDICATION
     Dosage: UNK
     Route: 067
     Dates: start: 20070201, end: 20070301
  3. NUVARING [Suspect]
     Dosage: UNK
  4. NUVARING [Suspect]
     Dosage: UNK
     Dates: start: 20090501

REACTIONS (11)
  - PAIN [None]
  - SINUS DISORDER [None]
  - ANAEMIA [None]
  - PULMONARY EMBOLISM [None]
  - SKIN LESION [None]
  - DERMATITIS ALLERGIC [None]
  - ABSCESS [None]
  - RECTAL HAEMORRHAGE [None]
  - BACK PAIN [None]
  - PNEUMONIA [None]
  - HAEMOPTYSIS [None]
